FAERS Safety Report 5116505-4 (Version None)
Quarter: 2006Q3

REPORT INFORMATION
  Report Type: 
  Country: None (occurrence: None)
  Receive Date: 20060928
  Receipt Date: 20060524
  Transmission Date: 20061208
  Serious: Yes (Other)
  Sender: FDA-Public Use
  Company Number: PHEH2006US06863

PATIENT
  Age: 65 Year
  Sex: Female

DRUGS (6)
  1. FEMARA [Suspect]
     Indication: BREAST CANCER
     Dosage: 2.5 MG, QD
     Route: 048
     Dates: start: 20040512, end: 20060614
  2. CLONAZEPAM [Concomitant]
     Indication: RESTLESS LEGS SYNDROME
     Dosage: 0.5 MG, QHS
     Route: 048
  3. NAPROSYN [Concomitant]
     Indication: ARTHRITIS
     Dosage: UNK, BID
  4. MAGNESIUM OXIDE [Concomitant]
  5. MULTIVITAMIN [Concomitant]
  6. CALCIUM GLUCONATE [Concomitant]

REACTIONS (2)
  - BURNING SENSATION [None]
  - PERIPHERAL SENSORY NEUROPATHY [None]
